FAERS Safety Report 6985156-9 (Version None)
Quarter: 2010Q3

REPORT INFORMATION
  Report Type: 
  Country: None (occurrence: None)
  Receive Date: 20100915
  Receipt Date: 20100906
  Transmission Date: 20110219
  Serious: Yes (Death, Other)
  Sender: FDA-Public Use
  Company Number: JP-ROCHE-724050

PATIENT
  Sex: Male

DRUGS (3)
  1. AVASTIN [Suspect]
     Indication: LUNG ADENOCARCINOMA
     Dosage: STOP DATE: 2010
     Route: 041
     Dates: start: 20100617
  2. CISPLATIN [Suspect]
     Indication: LUNG ADENOCARCINOMA
     Dosage: NOTE: DOSAGE IS UNCERTAIN. STOP DATE: 2010
     Route: 041
  3. GEMZAR [Suspect]
     Indication: LUNG ADENOCARCINOMA
     Dosage: DOSAGE IS UNCERTAIN. STOP DATE: 2010
     Route: 041

REACTIONS (3)
  - DISEASE PROGRESSION [None]
  - NEUTROPENIA [None]
  - PNEUMONIA ASPIRATION [None]
